FAERS Safety Report 14008861 (Version 1)
Quarter: 2017Q3

REPORT INFORMATION
  Report Type: Spontaneous
  Country: DE (occurrence: DE)
  Receive Date: 20170925
  Receipt Date: 20170925
  Transmission Date: 20171128
  Serious: Yes (Death, Other)
  Sender: FDA-Public Use
  Company Number: DE-TEVA-803717GER

PATIENT
  Age: 86 Year
  Sex: Female

DRUGS (11)
  1. TAVOR (LORAZEPAM) [Concomitant]
     Active Substance: LORAZEPAM
     Indication: SEDATIVE THERAPY
     Route: 048
  2. DIAZEPAM. [Concomitant]
     Active Substance: DIAZEPAM
     Indication: SEDATIVE THERAPY
     Route: 042
     Dates: start: 20170830, end: 20170830
  3. VOMEX [Concomitant]
     Active Substance: DIMENHYDRINATE
     Indication: NAUSEA
     Route: 042
     Dates: start: 20170830, end: 20170830
  4. MACROGOL RATIO BALANCE [Concomitant]
     Indication: CONSTIPATION
     Dosage: 1-0-0
     Route: 048
  5. OMEPRAZOL [Concomitant]
     Active Substance: OMEPRAZOLE
     Dosage: 20 MILLIGRAM DAILY; 1-0-0
     Route: 048
  6. ONDANSETRON [Concomitant]
     Active Substance: ONDANSETRON
     Indication: NAUSEA
     Route: 042
     Dates: start: 20170830, end: 20170830
  7. DONA [Concomitant]
     Route: 048
  8. HEPARIN-NATRIUM-7500-RATIOPHARM FS [Suspect]
     Active Substance: HEPARIN SODIUM
     Indication: ANTICOAGULANT THERAPY
     Dosage: ONCE DAILY ON DAY 1; TWICE PER DAY ON DAY 2 AND 3
     Route: 058
     Dates: start: 20170829
  9. FUROSEMID [Concomitant]
     Active Substance: FUROSEMIDE
     Dosage: 40 MILLIGRAM DAILY; 0-1-0
     Route: 048
  10. CITALOPRAM [Concomitant]
     Active Substance: CITALOPRAM HYDROBROMIDE
     Dosage: 40 MILLIGRAM DAILY; 1-0-0
     Route: 048
  11. NOVAMINSULFON TROPFEN RATIOPHARM [Concomitant]
     Indication: PAIN
     Dosage: 60 GTT DAILY; 20-20-20
     Route: 048
     Dates: start: 20170829

REACTIONS (4)
  - Aspartate aminotransferase increased [None]
  - Transaminases increased [Recovered/Resolved]
  - Death [Fatal]
  - Alanine aminotransferase increased [None]

NARRATIVE: CASE EVENT DATE: 20170831
